FAERS Safety Report 8418691-7 (Version None)
Quarter: 2012Q2

REPORT INFORMATION
  Report Type: 
  Country: None (occurrence: None)
  Receive Date: 20120607
  Receipt Date: 20120601
  Transmission Date: 20120825
  Serious: Yes (Hospitalization, Other)
  Sender: FDA-Public Use
  Company Number: US-BAYER-2011-091719

PATIENT
  Age: 34 Year
  Sex: Female
  Weight: 91 kg

DRUGS (17)
  1. YAZ [Suspect]
     Indication: CONTRACEPTION
     Dosage: UNK
     Route: 048
     Dates: start: 20100101, end: 20110101
  2. PROPRANOLOL [Concomitant]
     Indication: HYPERTENSION
     Dosage: 40 MG, QD
     Route: 048
  3. MUCINEX [Concomitant]
     Indication: OTITIS MEDIA
     Dosage: 60-600 MG TWO TIMES DAILY
     Dates: start: 20110112
  4. TRI-PREVIFEM [Concomitant]
     Dosage: UNK
     Dates: start: 20110101
  5. FLONASE [Concomitant]
     Indication: ACUTE SINUSITIS
     Dosage: 2 SPRAYS
     Route: 045
  6. MEDROL [Concomitant]
     Indication: ACUTE SINUSITIS
     Dosage: 4 MG AS DIRECTED
     Route: 048
     Dates: start: 20120131
  7. PROMETHAZINE [Concomitant]
     Indication: VIRAL INFECTION
  8. KETOROLAC TROMETHAMINE [Concomitant]
     Dosage: 60 MG, ONE TIME DOSE
     Dates: start: 20110127
  9. PROMETHAZINE [Concomitant]
     Indication: GASTROENTERITIS
  10. EXCEDRIN (MIGRAINE) [Concomitant]
     Dosage: 2 TABS EVERY 4-6 HRS PRN
     Route: 048
  11. PERCOCET [Concomitant]
     Dosage: 7.5 MG EVERY 4 HOURS PRN
     Route: 048
  12. PHENERGAN [Concomitant]
     Dosage: 25 MG,NOW
     Route: 030
     Dates: start: 20110126
  13. BACTRIM DS [Concomitant]
     Indication: ACUTE SINUSITIS
     Dosage: UNK UNK, BID
     Route: 048
     Dates: start: 20110127
  14. PROMETHAZINE [Concomitant]
     Indication: NAUSEA
     Dosage: 25 MG EVER SIX HOURS AS NEEDED
     Dates: start: 20110126
  15. DEMEROL [Concomitant]
     Indication: HEADACHE
     Dosage: 25 MG AND 50 MG NOW
     Route: 030
     Dates: start: 20110126
  16. KEFLEX [Concomitant]
     Indication: EUSTACHIAN TUBE DYSFUNCTION
     Dosage: 500 MG, TWO TIMES DAILY
     Dates: start: 20110112
  17. LORTAB [Concomitant]
     Indication: HEADACHE
     Dosage: 7.5-500 MG EVERY FOUR HOURS AS NEEDED
     Dates: start: 20110126

REACTIONS (10)
  - ANXIETY [None]
  - PAIN [None]
  - BLINDNESS TRANSIENT [None]
  - INTRACRANIAL VENOUS SINUS THROMBOSIS [None]
  - ANHEDONIA [None]
  - EMOTIONAL DISTRESS [None]
  - INJURY [None]
  - CEREBRAL VENOUS THROMBOSIS [None]
  - HEADACHE [None]
  - GENERAL PHYSICAL HEALTH DETERIORATION [None]
